FAERS Safety Report 15907659 (Version 1)
Quarter: 2019Q1

REPORT INFORMATION
  Report Type: Report from Study
  Country: US (occurrence: US)
  Receive Date: 20190204
  Receipt Date: 20190204
  Transmission Date: 20190417
  Serious: Yes (Hospitalization, Other)
  Sender: FDA-Public Use
  Company Number: US-GILEAD-2019-0388163

PATIENT
  Age: 37 Year
  Sex: Female

DRUGS (1)
  1. AZTREONAM LYSINE [Suspect]
     Active Substance: AZTREONAM LYSINE
     Indication: CYSTIC FIBROSIS
     Dosage: 75 MG, TID FOR 28 DAYS ON AND 28 DAYS OFF. REPEAT.
     Route: 055
     Dates: start: 200701

REACTIONS (5)
  - Condition aggravated [Not Recovered/Not Resolved]
  - Lung transplant [Recovering/Resolving]
  - Product dose omission [Recovered/Resolved]
  - Pulmonary function test decreased [Unknown]
  - Memory impairment [Unknown]

NARRATIVE: CASE EVENT DATE: 200701
